FAERS Safety Report 7008676-X (Version None)
Quarter: 2010Q3

REPORT INFORMATION
  Report Type: 
  Country: None (occurrence: None)
  Receive Date: 20100922
  Receipt Date: 20100913
  Transmission Date: 20110219
  Serious: Yes (Other)
  Sender: FDA-Public Use
  Company Number: FR-AMGEN-US387210

PATIENT
  Sex: Female

DRUGS (3)
  1. ENBREL [Suspect]
     Indication: RHEUMATOID ARTHRITIS
     Dosage: PREFILLED SYRINGE/50 MG 1 TIME PER WEEK
     Route: 058
     Dates: start: 20091101, end: 20091228
  2. ENBREL [Suspect]
     Dosage: PREFILLED SYRINGE/50 MG 1 TIME PER WEEK
     Route: 058
     Dates: start: 20100116
  3. ENBREL [Suspect]
     Route: 058
     Dates: start: 20100101

REACTIONS (2)
  - CUTANEOUS VASCULITIS [None]
  - INFLAMMATION [None]
